FAERS Safety Report 21403690 (Version 3)
Quarter: 2023Q1

REPORT INFORMATION
  Report Type: Spontaneous
  Country: CH (occurrence: CH)
  Receive Date: 20221003
  Receipt Date: 20230105
  Transmission Date: 20230418
  Serious: Yes (Life-Threatening, Other)
  Sender: FDA-Public Use
  Company Number: CH-NOVARTISPH-NVSC2022CH222451

PATIENT
  Sex: Female

DRUGS (4)
  1. EXELON [Suspect]
     Active Substance: RIVASTIGMINE TARTRATE
     Indication: Dementia Alzheimer^s type
     Dosage: UNK, QD (MORNINGS)
     Route: 065
     Dates: start: 20220925, end: 20220926
  2. CALCIUM [Concomitant]
     Active Substance: CALCIUM
     Indication: Product used for unknown indication
     Dosage: UNK, QD (0-1-0)
     Route: 065
  3. MAGNESIUM [Concomitant]
     Active Substance: MAGNESIUM
     Indication: Product used for unknown indication
     Dosage: UNK, QD
     Route: 065
  4. DAFALGAN [Concomitant]
     Active Substance: ACETAMINOPHEN
     Indication: Product used for unknown indication
     Dosage: 500 MG, PRN
     Route: 065

REACTIONS (13)
  - Feeling abnormal [Recovered/Resolved]
  - Confusional state [Not Recovered/Not Resolved]
  - General physical health deterioration [Recovered/Resolved]
  - Disturbance in attention [Recovering/Resolving]
  - Electric shock sensation [Recovered/Resolved]
  - Dry mouth [Recovered/Resolved]
  - Application site pain [Recovered/Resolved]
  - Abnormal sensation in eye [Recovered/Resolved]
  - Vertigo [Recovered/Resolved]
  - Gait inability [Recovered/Resolved]
  - Fatigue [Recovering/Resolving]
  - Fall [Recovered/Resolved]
  - Fall [Recovering/Resolving]

NARRATIVE: CASE EVENT DATE: 20220925
